FAERS Safety Report 22115432 (Version 1)
Quarter: 2023Q1

REPORT INFORMATION
  Report Type: Spontaneous
  Country: US (occurrence: None)
  Receive Date: 20230318
  Receipt Date: 20230318
  Transmission Date: 20230418
  Serious: Yes (Hospitalization)
  Sender: FDA-Public Use
  Company Number: None

PATIENT
  Sex: Female
  Weight: 135.17 kg

DRUGS (32)
  1. CAPECITABINE [Suspect]
     Active Substance: CAPECITABINE
     Indication: Rectal cancer
     Dosage: 2000MG TWICE DAILY ORAL - 14 DAYS ON, 7 D OFF
     Route: 048
     Dates: start: 202212
  2. ARMOUR THYROID [Concomitant]
  3. AUGMENTIN [Concomitant]
  4. BACTRIM DS [Concomitant]
  5. BENADRYL ALLERGY [Concomitant]
  6. BUTTERBUR [Concomitant]
  7. CIPRO [Concomitant]
  8. CLARITIN-D [Concomitant]
  9. CLINDAMYCIN [Concomitant]
  10. CLOTRIMAZOLE [Concomitant]
  11. CROMOLYN [Concomitant]
     Active Substance: CROMOLYN
  12. CYMBALTA [Concomitant]
  13. DEXAMETHASONE [Concomitant]
  14. DOXYCYCLINE [Concomitant]
  15. EMLA [Concomitant]
  16. GABAPENTIN [Concomitant]
  17. HYDROCORTISONE [Concomitant]
  18. LASIX [Concomitant]
  19. LEVOFLOXACIN [Concomitant]
  20. LIDOCAINE AND PRILOCAINE [Concomitant]
  21. MAGNESIUM OXIDE [Concomitant]
  22. METOPROLOL [Concomitant]
  23. MUCINEX [Concomitant]
  24. MULTIVITAMIN [Concomitant]
  25. NORCO [Concomitant]
  26. ONDANSETRON [Concomitant]
  27. PHENERGAN [Concomitant]
  28. POTASSIUM CHLORIDE [Concomitant]
  29. PROCHLORPERAZINE [Concomitant]
  30. VIBRAMYCIN [Concomitant]
  31. VITAMIN D3 [Concomitant]
  32. XARELTO [Concomitant]

REACTIONS (1)
  - Therapy interrupted [None]
